FAERS Safety Report 8480058-3 (Version None)
Quarter: 2012Q2

REPORT INFORMATION
  Report Type: 
  Country: None (occurrence: None)
  Receive Date: 20120629
  Receipt Date: 20120625
  Transmission Date: 20120825
  Serious: No
  Sender: FDA-Public Use
  Company Number: US-PFIZER INC-2012153390

PATIENT
  Sex: Female
  Weight: 49.433 kg

DRUGS (2)
  1. CLEOCIN HYDROCHLORIDE [Suspect]
     Dosage: UNK
  2. AVIANE-28 [Suspect]
     Indication: CONTRACEPTION
     Dosage: UNK
     Dates: start: 20120619

REACTIONS (6)
  - UTERINE LEIOMYOMA [None]
  - HEADACHE [None]
  - AGITATION [None]
  - IRRITABILITY [None]
  - DRUG INEFFECTIVE [None]
  - PAIN [None]
